FAERS Safety Report 13613874 (Version 1)
Quarter: 2017Q2

REPORT INFORMATION
  Report Type: Spontaneous
  Country: US (occurrence: US)
  Receive Date: 20170606
  Receipt Date: 20170606
  Transmission Date: 20170830
  Serious: No
  Sender: FDA-Public Use
  Company Number: US-TEVA-714008USA

PATIENT
  Sex: Male

DRUGS (1)
  1. MINOXIDIL. [Suspect]
     Active Substance: MINOXIDIL
     Dosage: 2 TIMES
     Route: 061
     Dates: start: 201607

REACTIONS (2)
  - Product substitution issue [Not Recovered/Not Resolved]
  - Skin discolouration [Unknown]
